FAERS Safety Report 15737961 (Version 1)
Quarter: 2018Q4

REPORT INFORMATION
  Report Type: Spontaneous
  Country: US (occurrence: US)
  Receive Date: 20181219
  Receipt Date: 20181219
  Transmission Date: 20190205
  Serious: Yes (Death)
  Sender: FDA-Public Use
  Company Number: US-ASTRAZENECA-2018SF63402

PATIENT
  Age: 56 Year
  Sex: Female

DRUGS (1)
  1. BYDUREON [Suspect]
     Active Substance: EXENATIDE
     Dosage: UNKNOWN
     Route: 065
     Dates: start: 2018

REACTIONS (4)
  - Pancreatic carcinoma [Fatal]
  - Weight decreased [Unknown]
  - Jaundice [Unknown]
  - Eating disorder [Unknown]

NARRATIVE: CASE EVENT DATE: 2018
